FAERS Safety Report 17024577 (Version 1)
Quarter: 2019Q4

REPORT INFORMATION
  Report Type: Spontaneous
  Country: IL (occurrence: IL)
  Receive Date: 20191113
  Receipt Date: 20191113
  Transmission Date: 20200122
  Serious: Yes (Hospitalization, Other)
  Sender: FDA-Public Use
  Company Number: IL-BRISTOL-MYERS SQUIBB COMPANY-BMS-2019-109266

PATIENT
  Age: 81 Year
  Sex: Female

DRUGS (1)
  1. ELIQUIS [Suspect]
     Active Substance: APIXABAN
     Indication: CEREBROVASCULAR ACCIDENT PROPHYLAXIS
     Dosage: 5 MILLIGRAM, BID
     Route: 065
     Dates: start: 20190110, end: 20190723

REACTIONS (6)
  - Sepsis [Unknown]
  - Pleural effusion [Unknown]
  - Fall [Unknown]
  - Pneumonia [Unknown]
  - Cardiac failure [Unknown]
  - Subdural haematoma [Unknown]

NARRATIVE: CASE EVENT DATE: 20190723
